FAERS Safety Report 25975388 (Version 1)
Quarter: 2025Q4

REPORT INFORMATION
  Report Type: Spontaneous
  Country: US (occurrence: US)
  Receive Date: 20251029
  Receipt Date: 20251029
  Transmission Date: 20260118
  Serious: No
  Sender: GLAXOSMITHKLINE
  Company Number: US-GSK-US2025137613

PATIENT

DRUGS (3)
  1. JEMPERLI [Suspect]
     Active Substance: DOSTARLIMAB-GXLY
     Indication: Product used for unknown indication
     Dosage: UNK
  2. JEMPERLI [Suspect]
     Active Substance: DOSTARLIMAB-GXLY
     Dosage: UNK
  3. JEMPERLI [Suspect]
     Active Substance: DOSTARLIMAB-GXLY
     Dosage: UNK

REACTIONS (1)
  - Product storage error [Unknown]
